FAERS Safety Report 8108394-0 (Version None)
Quarter: 2012Q1

REPORT INFORMATION
  Report Type: 
  Country: None (occurrence: None)
  Receive Date: 20120202
  Receipt Date: 20120122
  Transmission Date: 20120608
  Serious: Yes (Hospitalization, Other)
  Sender: FDA-Public Use
  Company Number: PHHY2012MX006317

PATIENT
  Sex: Female

DRUGS (2)
  1. EXFORGE [Suspect]
     Indication: HYPERTENSION
     Dosage: 1 DF (160/5 MG), ONCE A DAY
     Dates: start: 20060101
  2. INSULIN [Concomitant]
     Indication: DIABETES MELLITUS
     Dosage: 16 U, DAILY
     Dates: start: 20020101

REACTIONS (3)
  - CALCULUS URINARY [None]
  - ACUTE ABDOMEN [None]
  - GAIT DISTURBANCE [None]
